FAERS Safety Report 7116293-6 (Version None)
Quarter: 2010Q4

REPORT INFORMATION
  Report Type: 
  Country: None (occurrence: None)
  Receive Date: 20101122
  Receipt Date: 20101112
  Transmission Date: 20110411
  Serious: Yes (Hospitalization, Congenital Anomaly)
  Sender: FDA-Public Use
  Company Number: A0680316A

PATIENT
  Sex: Male
  Weight: 2.5 kg

DRUGS (12)
  1. PAXIL [Suspect]
     Indication: STRESS
     Dosage: 40MG PER DAY
     Dates: start: 19980101, end: 20050101
  2. BUSPIRONE HCL [Concomitant]
     Dates: start: 20050101
  3. OMEPRAZOLE [Concomitant]
     Dates: start: 20050101
  4. SYNTHROID [Concomitant]
     Dates: start: 20050101
  5. PRENATAL VITAMINS [Concomitant]
  6. HYDROCODONE [Concomitant]
  7. ZYRTEC [Concomitant]
  8. MACROBID [Concomitant]
  9. BACTRIM [Concomitant]
  10. NEXIUM [Concomitant]
  11. PHENERGAN [Concomitant]
  12. SINGULAIR [Concomitant]

REACTIONS (9)
  - ATRIAL FIBRILLATION [None]
  - ATRIAL FLUTTER [None]
  - ATRIAL SEPTAL DEFECT [None]
  - CONGENITAL AORTIC ATRESIA [None]
  - DRUG EXPOSURE DURING PREGNANCY [None]
  - HYPOPLASTIC LEFT HEART SYNDROME [None]
  - HYPOPLASTIC RIGHT HEART SYNDROME [None]
  - MITRAL VALVE STENOSIS [None]
  - PATENT DUCTUS ARTERIOSUS [None]
